FAERS Safety Report 8498098 (Version 13)
Quarter: 2017Q1

REPORT INFORMATION
  Report Type: Spontaneous
  Country: US (occurrence: US)
  Receive Date: 20120406
  Receipt Date: 20170118
  Transmission Date: 20170429
  Serious: Yes (Other)
  Sender: FDA-Public Use
  Company Number: US-GLAXOSMITHKLINE-A0972496A

PATIENT
  Age: 13 Year
  Sex: Female
  Weight: 56 kg

DRUGS (10)
  1. COUMADIN [Concomitant]
     Active Substance: WARFARIN SODIUM
  2. FLOLAN [Suspect]
     Active Substance: EPOPROSTENOL SODIUM
     Dosage: 50 NG/KG/MIN CONTINUOUS
     Route: 042
  3. BOSENTAN. [Concomitant]
     Active Substance: BOSENTAN
     Indication: PULMONARY HYPERTENSION
     Route: 048
  4. REVATIO [Concomitant]
     Active Substance: SILDENAFIL CITRATE
  5. FLOLAN [Suspect]
     Active Substance: EPOPROSTENOL SODIUM
     Dosage: UNK
     Dates: start: 20101207
  6. SILDENAFIL. [Concomitant]
     Active Substance: SILDENAFIL
     Indication: PULMONARY HYPERTENSION
     Route: 048
  7. FLOLAN [Suspect]
     Active Substance: EPOPROSTENOL SODIUM
     Dosage: 48 NG/KG/MIN CONTINUOUS
     Route: 042
  8. FLOLAN [Suspect]
     Active Substance: EPOPROSTENOL SODIUM
     Indication: PULMONARY ARTERIAL HYPERTENSION
     Dosage: DOSE: 34.5 NG/KG/MIN; CONCENTRATION: 45000 NG/ML; PUMP RATE: UNKNOWN; VIAL STRENGTH: 1.5 MG.
     Route: 042
     Dates: start: 20101207
  9. FLOLAN [Suspect]
     Active Substance: EPOPROSTENOL SODIUM
     Dosage: UNK
     Dates: start: 20101207
  10. FLOLAN DILUENT SOLUTION FOR INJECTION [Suspect]
     Active Substance: GLYCINE\MANNITOL\SODIUM CHLORIDE
     Indication: PULMONARY ARTERIAL HYPERTENSION
     Route: 042

REACTIONS (8)
  - Dyspnoea [Unknown]
  - Presyncope [Recovered/Resolved]
  - Dizziness [Unknown]
  - Drug dose omission [Unknown]
  - Complication associated with device [Unknown]
  - Injury [Recovered/Resolved]
  - Device leakage [Recovered/Resolved]
  - Emergency care [Unknown]

NARRATIVE: CASE EVENT DATE: 20120330
